FAERS Safety Report 4595309-5 (Version None)
Quarter: 2005Q1

REPORT INFORMATION
  Report Type: 
  Country: None (occurrence: None)
  Receive Date: 20050225
  Receipt Date: 20050225
  Transmission Date: 20050727
  Serious: Yes (Other)
  Sender: FDA-Public Use
  Company Number: None

PATIENT
  Age: 37 Year
  Sex: Female
  Weight: 102 kg

DRUGS (6)
  1. NORMAL SALINE 10 ML PRE-FILLED SYRINGE [Suspect]
     Dosage: ONE DOSE
  2. DOLASETRON [Concomitant]
  3. MORPHINE [Concomitant]
  4. HYDROMORPHONE [Concomitant]
  5. DIPHENHYDRAMINE HCL [Concomitant]
  6. REGLAN [Concomitant]

REACTIONS (1)
  - DYSGEUSIA [None]
